FAERS Safety Report 11127377 (Version 1)
Quarter: 2015Q2

REPORT INFORMATION
  Report Type: Spontaneous
  Country: US (occurrence: None)
  Receive Date: 20150520
  Receipt Date: 20150520
  Transmission Date: 20150821
  Serious: Yes (Hospitalization)
  Sender: FDA-Public Use
  Company Number: None

PATIENT
  Age: 72 Year
  Sex: Female
  Weight: 86.8 kg

DRUGS (9)
  1. HARVONI [Suspect]
     Active Substance: LEDIPASVIR\SOFOSBUVIR
     Indication: HEPATITIS C
     Route: 048
     Dates: start: 20141119, end: 20150211
  2. PREDNISONE. [Concomitant]
     Active Substance: PREDNISONE
  3. CYCLOSPORINE. [Concomitant]
     Active Substance: CYCLOSPORINE
  4. LOSARTAN [Concomitant]
     Active Substance: LOSARTAN
  5. ATENOLOL. [Concomitant]
     Active Substance: ATENOLOL
  6. CYANOCOBALIN [Concomitant]
  7. ULORIC [Concomitant]
     Active Substance: FEBUXOSTAT
  8. VITAMIN B [Concomitant]
     Active Substance: VITAMIN B
  9. FALODIPINE [Concomitant]

REACTIONS (7)
  - Diarrhoea [None]
  - Hypophagia [None]
  - Dizziness [None]
  - Nausea [None]
  - Vomiting [None]
  - Chills [None]
  - Rhinorrhoea [None]

NARRATIVE: CASE EVENT DATE: 20150116
